FAERS Safety Report 9102873 (Version 2)
Quarter: 2013Q1

REPORT INFORMATION
  Report Type: Spontaneous
  Country: US (occurrence: US)
  Receive Date: 20130218
  Receipt Date: 20130313
  Transmission Date: 20140127
  Serious: No
  Sender: FDA-Public Use
  Company Number: US-PFIZER INC-2013059387

PATIENT
  Age: 77 Year
  Sex: Female

DRUGS (1)
  1. PROPANOLOL HCL [Suspect]
     Dosage: UNK

REACTIONS (1)
  - Rash [Unknown]
